FAERS Safety Report 6612366-2 (Version None)
Quarter: 2010Q1

REPORT INFORMATION
  Report Type: 
  Country: None (occurrence: None)
  Receive Date: 20100303
  Receipt Date: 20100225
  Transmission Date: 20100710
  Serious: Yes (Hospitalization)
  Sender: FDA-Public Use
  Company Number: BR-SANOFI-AVENTIS-2010SA011212

PATIENT
  Sex: Female
  Weight: 55 kg

DRUGS (9)
  1. LANTUS [Suspect]
     Route: 058
     Dates: start: 20100101
  2. SOLOSTAR [Suspect]
     Dates: start: 20100101
  3. METFORMIN HYDROCHLORIDE [Concomitant]
     Dosage: 2 TABS DAILY
     Route: 048
  4. DIAMICRON [Concomitant]
     Dosage: 2 TABLETS DAILY
     Route: 048
  5. ENALAPRIL MALEATE [Concomitant]
     Indication: BLOOD PRESSURE
     Route: 048
  6. VITAMIN B-12 [Concomitant]
     Route: 048
  7. AAS [Concomitant]
     Route: 048
  8. EXELON [Concomitant]
     Route: 048
  9. CITALOPRAM HYDROBROMIDE [Concomitant]
     Indication: ANTIDEPRESSANT THERAPY
     Route: 048

REACTIONS (4)
  - BLOOD GLUCOSE INCREASED [None]
  - HYPOGLYCAEMIA [None]
  - INFLUENZA [None]
  - WEIGHT DECREASED [None]
